FAERS Safety Report 9108924 (Version 2)
Quarter: 2013Q4

REPORT INFORMATION
  Report Type: Spontaneous
  Country: GB (occurrence: GB)
  Receive Date: 20130222
  Receipt Date: 20131004
  Transmission Date: 20140711
  Serious: Yes (Death, Hospitalization, Other)
  Sender: FDA-Public Use
  Company Number: GB-TARO-2013P1002357

PATIENT
  Sex: Female

DRUGS (16)
  1. WARFARIN SODIUM TABLETS USP 3MG [Suspect]
     Dates: start: 20051114, end: 20091221
  2. AUGMENTIN [Suspect]
     Dates: start: 20091105, end: 20091112
  3. DIGOXIN [Suspect]
     Dates: start: 20051113, end: 20060307
  4. FUROSEMIDE [Suspect]
     Dates: start: 20091021, end: 20091221
  5. TAMOXIFEN [Suspect]
     Dates: start: 20051113, end: 20090921
  6. AMOXICILLIN [Concomitant]
     Dates: start: 20091220, end: 20091221
  7. ATENOLOL [Concomitant]
     Dates: start: 20051113, end: 20091220
  8. BUCCASTEM (PROCHLORPERAZINE MALEATE) [Concomitant]
     Dates: start: 20091104, end: 20091105
  9. BUSCOPAN (HYOSCINE BUTYLBROMIDE) [Concomitant]
     Dates: start: 20091104, end: 20091110
  10. CANDESARTAN [Concomitant]
     Dates: start: 20090313, end: 20091221
  11. CO-CODAMOL (CODEINE PHOSPHATE/PARACETAMOL) [Concomitant]
     Dates: start: 20091220, end: 20091221
  12. FERROUS GLUCONATE [Concomitant]
     Dates: start: 1978, end: 20091221
  13. FERROUS SULPHATE [Concomitant]
     Dates: start: 20091127, end: 20091221
  14. LACTULOSE [Concomitant]
     Route: 048
     Dates: start: 20091220, end: 20091221
  15. LEVOTHYROXINE SODIUM [Concomitant]
     Dates: start: 20090615, end: 20091221
  16. TIOTROPIUM BROMIDE [Concomitant]
     Route: 055
     Dates: start: 20090814, end: 20091221

REACTIONS (12)
  - Aortic aneurysm rupture [Fatal]
  - Thrombocytopenia [Not Recovered/Not Resolved]
  - Anaemia [Not Recovered/Not Resolved]
  - Faeces discoloured [Not Recovered/Not Resolved]
  - Haemorrhage [Not Recovered/Not Resolved]
  - Blister [Not Recovered/Not Resolved]
  - Contusion [Not Recovered/Not Resolved]
  - Drug interaction [Not Recovered/Not Resolved]
  - Malaise [Not Recovered/Not Resolved]
  - Dyspnoea [Not Recovered/Not Resolved]
  - Asthenia [Not Recovered/Not Resolved]
  - Aortic aneurysm [Fatal]
